FAERS Safety Report 4482131-3 (Version None)
Quarter: 2004Q4

REPORT INFORMATION
  Report Type: 
  Country: None (occurrence: None)
  Receive Date: 20041020
  Receipt Date: 20041001
  Transmission Date: 20050328
  Serious: Yes (Hospitalization)
  Sender: FDA-Public Use
  Company Number: US_0408104538

PATIENT
  Age: 42 Year
  Sex: Female
  Weight: 64 kg

DRUGS (7)
  1. ZYPREXA [Suspect]
     Indication: SCHIZOPHRENIA
     Dosage: 20 MG DAY
     Dates: start: 20020715, end: 20021028
  2. FLUVOXAMINE MALEATE [Concomitant]
  3. GLUCOPHAGE [Concomitant]
  4. STARLIX [Concomitant]
  5. PLAVIX [Concomitant]
  6. REGLAN [Concomitant]
  7. SEROQUEL [Concomitant]

REACTIONS (11)
  - AGGRESSION [None]
  - CONFUSIONAL STATE [None]
  - DIABETES MELLITUS [None]
  - DIABETIC GASTROPARESIS [None]
  - DISORIENTATION [None]
  - ENURESIS [None]
  - FATIGUE [None]
  - FOOD CRAVING [None]
  - IRRITABILITY [None]
  - MENTAL STATUS CHANGES [None]
  - THIRST [None]
